FAERS Safety Report 6448796-1 (Version None)
Quarter: 2009Q4

REPORT INFORMATION
  Report Type: 
  Country: None (occurrence: None)
  Receive Date: 20091120
  Receipt Date: 20091110
  Transmission Date: 20100525
  Serious: Yes (Other)
  Sender: FDA-Public Use
  Company Number: PHHY2009AR49210

PATIENT
  Sex: Female

DRUGS (4)
  1. ACLASTA [Suspect]
     Indication: OSTEOPOROSIS
     Dosage: UNK
     Dates: start: 20081217
  2. NIFEDIPINE [Concomitant]
  3. RABEPRAZOLE [Concomitant]
  4. TRIMEBUTINE [Concomitant]

REACTIONS (14)
  - ANAEMIA [None]
  - ARRHYTHMIA [None]
  - ASTHENIA [None]
  - ATRIAL FIBRILLATION [None]
  - DILATATION ATRIAL [None]
  - DIZZINESS [None]
  - EXTRASYSTOLES [None]
  - OEDEMA PERIPHERAL [None]
  - PULMONARY FIBROSIS [None]
  - PULMONARY HYPERTENSION [None]
  - RENAL FAILURE [None]
  - SYNCOPE [None]
  - THYROID DISORDER [None]
  - WEIGHT INCREASED [None]
